FAERS Safety Report 8564299-2 (Version None)
Quarter: 2012Q3

REPORT INFORMATION
  Report Type: 
  Country: None (occurrence: None)
  Receive Date: 20120803
  Receipt Date: 20120725
  Transmission Date: 20120928
  Serious: Yes (Other)
  Sender: FDA-Public Use
  Company Number: CA-JNJFOC-20111105057

PATIENT
  Sex: Male
  Weight: 71 kg

DRUGS (8)
  1. REMICADE [Suspect]
     Indication: ANKYLOSING SPONDYLITIS
     Route: 042
     Dates: start: 20080903
  2. TYLENOL (CAPLET) [Concomitant]
     Route: 048
  3. APO-KETO [Concomitant]
  4. MAXIDEX (EYE DROPS) [Concomitant]
     Indication: EYE DISORDER
     Dosage: EVERY 2 HOURS DAY TIME
     Route: 065
     Dates: start: 20111026, end: 20111213
  5. CORTISONE ACETATE [Concomitant]
     Indication: PSORIASIS
  6. TYLENOL (CAPLET) [Concomitant]
  7. DEXAMETHASONE [Concomitant]
     Indication: EYE DISORDER
     Dosage: AT BED TIME
     Route: 065
     Dates: start: 20111026, end: 20111213
  8. PREDNISONE [Concomitant]
     Indication: EYE DISORDER
     Dosage: EVERY 1 HOUR X 48 HOURS, EVERY 2 HOUR THEREAFTER
     Route: 065

REACTIONS (1)
  - UVEITIS [None]
